FAERS Safety Report 6130885-2 (Version None)
Quarter: 2009Q1

REPORT INFORMATION
  Report Type: 
  Country: None (occurrence: None)
  Receive Date: 20090325
  Receipt Date: 20090317
  Transmission Date: 20090719
  Serious: Yes (Other)
  Sender: FDA-Public Use
  Company Number: US-JNJFOC-20090204444

PATIENT
  Age: 66 Year
  Sex: Female
  Weight: 73.94 kg

DRUGS (2)
  1. EXTRA STRENGTH TYLENOL [Suspect]
     Indication: INSOMNIA
     Dosage: 1/4 CAPLET AS NEEDED FOR ABOUT 1 YEAR
     Route: 048
  2. HYDROCHLORATHIAZIDE [Concomitant]
     Indication: HYPERTENSION
     Dosage: 3-4 YEARS

REACTIONS (6)
  - BLINDNESS [None]
  - DEHYDRATION [None]
  - DRY MOUTH [None]
  - EYE HAEMORRHAGE [None]
  - OCULAR VASCULAR DISORDER [None]
  - WRONG TECHNIQUE IN DRUG USAGE PROCESS [None]
